FAERS Safety Report 7976158-4 (Version None)
Quarter: 2011Q4

REPORT INFORMATION
  Report Type: 
  Country: None (occurrence: None)
  Receive Date: 20111213
  Receipt Date: 20111013
  Transmission Date: 20120403
  Serious: No
  Sender: FDA-Public Use
  Company Number: US-AMGEN-USASP2011053008

PATIENT
  Age: 56 Year
  Sex: Female

DRUGS (14)
  1. MULTIVITAMIN                       /00097801/ [Concomitant]
  2. VITAMIN B12                        /00056201/ [Concomitant]
  3. PRILOSEC [Concomitant]
  4. VITAMIN D [Concomitant]
  5. ENBREL [Suspect]
     Indication: RHEUMATOID ARTHRITIS
     Dosage: 50 MG, QWK
     Dates: start: 20110101
  6. CALCIUM [Concomitant]
  7. ADVAIR DISKUS 100/50 [Concomitant]
  8. PLAQUENIL [Concomitant]
  9. PREDNISONE TAB [Concomitant]
  10. MIACALCIN [Concomitant]
  11. VITAMIN C                          /00008001/ [Concomitant]
  12. SUPER B COMPLEX                    /01995301/ [Concomitant]
  13. ALBUTEROL [Concomitant]
  14. VICODIN ES [Concomitant]

REACTIONS (2)
  - INCREASED TENDENCY TO BRUISE [None]
  - MALAISE [None]
